FAERS Safety Report 4392313-7 (Version None)
Quarter: 2004Q3

REPORT INFORMATION
  Report Type: 
  Country: None (occurrence: None)
  Receive Date: 20040702
  Receipt Date: 20040304
  Transmission Date: 20050211
  Serious: Yes (Other)
  Sender: FDA-Public Use
  Company Number: 2004UW04083

PATIENT
  Age: 78 Year
  Sex: Male
  Weight: 89.8122 kg

DRUGS (8)
  1. CRESTOR [Suspect]
     Indication: BLOOD TRIGLYCERIDES INCREASED
     Dosage: 5 MG PO
     Route: 048
     Dates: start: 20040201
  2. CRESTOR [Suspect]
     Indication: BLOOD TRIGLYCERIDES INCREASED
     Dosage: 10 MG PO
     Route: 048
     Dates: start: 20040101
  3. LANOXIN [Concomitant]
  4. ADALAT [Concomitant]
  5. LOPRESSOR [Concomitant]
  6. GLUCOPHAGE [Concomitant]
  7. ZESTORETIC [Concomitant]
  8. COUMADIN [Concomitant]

REACTIONS (4)
  - ASTHENIA [None]
  - CONFUSIONAL STATE [None]
  - DIARRHOEA [None]
  - FATIGUE [None]
